FAERS Safety Report 10584468 (Version 2)
Quarter: 2014Q4

REPORT INFORMATION
  Report Type: Spontaneous
  Country: None (occurrence: US)
  Receive Date: 20141114
  Receipt Date: 20141114
  Transmission Date: 20150529
  Serious: Yes (Death, Other)
  Sender: FDA-Public Use
  Company Number: US-PURDUE-USA-2014-0118878

PATIENT
  Age: 2 Year
  Sex: Male

DRUGS (1)
  1. OXYCODONE HYDROCHLORIDE (SIMILAR TO NDA 22-272) [Suspect]
     Active Substance: OXYCODONE HYDROCHLORIDE
     Indication: ACCIDENTAL EXPOSURE TO PRODUCT BY CHILD

REACTIONS (4)
  - Victim of homicide [Fatal]
  - Overdose [Fatal]
  - Respiratory arrest [Unknown]
  - Victim of child abuse [Fatal]

NARRATIVE: CASE EVENT DATE: 20130419
